FAERS Safety Report 21081061 (Version 1)
Quarter: 2022Q3

REPORT INFORMATION
  Report Type: Spontaneous
  Country: US (occurrence: None)
  Receive Date: 20220713
  Receipt Date: 20220713
  Transmission Date: 20221026
  Serious: Yes (Hospitalization)
  Sender: FDA-Public Use
  Company Number: None

PATIENT
  Sex: Female

DRUGS (1)
  1. HUMIRA [Suspect]
     Active Substance: ADALIMUMAB
     Indication: Psoriatic arthropathy
     Dosage: OTHER FREQUENCY : EVERY 14 DAYS;?
     Route: 030
     Dates: start: 20220512

REACTIONS (4)
  - Arthralgia [None]
  - Arthralgia [None]
  - Arthralgia [None]
  - Intervertebral disc protrusion [None]
